FAERS Safety Report 11300768 (Version 1)
Quarter: 2015Q3

REPORT INFORMATION
  Report Type: Spontaneous
  Country: US (occurrence: US)
  Receive Date: 20150722
  Receipt Date: 20150722
  Transmission Date: 20151125
  Serious: No
  Sender: FDA-Public Use
  Company Number: US-ELI_LILLY_AND_COMPANY-US201402007150

PATIENT
  Age: 13 Year
  Sex: Female
  Weight: 50.3 kg

DRUGS (2)
  1. FLORASTOR [Concomitant]
     Active Substance: SACCHAROMYCES CEREVISIAE
     Dosage: UNK, BID
  2. HUMATROPE [Suspect]
     Active Substance: SOMATROPIN
     Indication: CYTOGENETIC ABNORMALITY
     Dosage: 2 MG, QD
     Route: 058
     Dates: start: 2007

REACTIONS (1)
  - Ear infection [Recovered/Resolved]
